FAERS Safety Report 5365639-8 (Version None)
Quarter: 2007Q2

REPORT INFORMATION
  Report Type: 
  Country: None (occurrence: None)
  Receive Date: 20070621
  Receipt Date: 20070611
  Transmission Date: 20071010
  Serious: Yes (Other)
  Sender: FDA-Public Use
  Company Number: PT-ELI_LILLY_AND_COMPANY-PT200705004687

PATIENT
  Age: 17 Year
  Sex: Female

DRUGS (3)
  1. LISPRO [Suspect]
     Indication: DIABETES MELLITUS
     Dosage: 5 TIMES DAILY
     Route: 058
     Dates: start: 20070401, end: 20070402
  2. HUMULIN N [Concomitant]
     Indication: DIABETES MELLITUS
     Route: 058
  3. ACTRAPID INSULIN NOVO [Concomitant]

REACTIONS (3)
  - ABDOMINAL DISTENSION [None]
  - DIZZINESS [None]
  - NAUSEA [None]
